FAERS Safety Report 5935519-5 (Version None)
Quarter: 2008Q4

REPORT INFORMATION
  Report Type: 
  Country: None (occurrence: None)
  Receive Date: 20081028
  Receipt Date: 20081023
  Transmission Date: 20090506
  Serious: Yes (Death, Hospitalization)
  Sender: FDA-Public Use
  Company Number: 2008AL011373

PATIENT
  Sex: Female

DRUGS (1)
  1. DIGOXIN [Suspect]
     Dosage: PO
     Route: 048

REACTIONS (9)
  - ANXIETY [None]
  - BRONCHIAL SECRETION RETENTION [None]
  - DIALYSIS [None]
  - EMOTIONAL DISTRESS [None]
  - INJURY [None]
  - MONOPLEGIA [None]
  - RENAL FAILURE [None]
  - RESPIRATORY ARREST [None]
  - THERAPEUTIC AGENT TOXICITY [None]
